FAERS Safety Report 8108303-4 (Version None)
Quarter: 2012Q1

REPORT INFORMATION
  Report Type: 
  Country: None (occurrence: None)
  Receive Date: 20120202
  Receipt Date: 20120123
  Transmission Date: 20120608
  Serious: Yes (Other)
  Sender: FDA-Public Use
  Company Number: PHHY2011CA96412

PATIENT
  Sex: Female

DRUGS (2)
  1. METOPROLOL [Concomitant]
     Dosage: 50 MG, QD
  2. SANDOSTATIN LAR [Suspect]
     Indication: NEUROENDOCRINE TUMOUR
     Dosage: 30 MG, QMO
     Route: 030
     Dates: start: 20110902

REACTIONS (3)
  - SYNCOPE [None]
  - HYPOTENSION [None]
  - BLOOD PRESSURE SYSTOLIC INCREASED [None]
